FAERS Safety Report 13253272 (Version 1)
Quarter: 2017Q1

REPORT INFORMATION
  Report Type: Spontaneous
  Country: US (occurrence: US)
  Receive Date: 20170220
  Receipt Date: 20170220
  Transmission Date: 20170428
  Serious: No
  Sender: FDA-Public Use
  Company Number: US-SAGENTPRD-2017-US-000028

PATIENT
  Age: 65 Year
  Sex: Female
  Weight: 92.99 kg

DRUGS (1)
  1. OCTREOTIDE ACETATE INJECTION (PRESERVATIVE) [Suspect]
     Active Substance: OCTREOTIDE ACETATE
     Dosage: UNKNOWN, SUBCUTANEOUS

REACTIONS (2)
  - Injection site pain [Recovered/Resolved]
  - Expired product administered [None]
